FAERS Safety Report 17610278 (Version 1)
Quarter: 2020Q1

REPORT INFORMATION
  Report Type: Spontaneous
  Country: US (occurrence: US)
  Receive Date: 20200330
  Receipt Date: 20200330
  Transmission Date: 20200409
  Serious: Yes (Hospitalization)
  Sender: FDA-Public Use
  Company Number: None

PATIENT
  Age: 3 Month
  Sex: Female

DRUGS (1)
  1. VIGABATTRIN POWDER 500MG PAR [Suspect]
     Active Substance: VIGABATRIN
     Route: 048
     Dates: start: 20200306

REACTIONS (1)
  - Seizure [None]

NARRATIVE: CASE EVENT DATE: 20200302
